FAERS Safety Report 8119863-1 (Version None)
Quarter: 2012Q1

REPORT INFORMATION
  Report Type: 
  Country: None (occurrence: None)
  Receive Date: 20120207
  Receipt Date: 20120202
  Transmission Date: 20120608
  Serious: Yes (Hospitalization, Congenital Anomaly, Other)
  Sender: FDA-Public Use
  Company Number: US-PFIZER INC-2011158536

PATIENT
  Sex: Male
  Weight: 3.2 kg

DRUGS (13)
  1. EFFEXOR XR [Suspect]
     Dosage: 150 MG, 1X/DAY
     Route: 064
     Dates: start: 20080505
  2. BENADRYL [Concomitant]
     Dosage: UNK
     Route: 064
     Dates: start: 20090929
  3. LOTRISONE [Concomitant]
     Dosage: UNK
     Route: 064
     Dates: start: 20100112
  4. PRILOSEC [Concomitant]
     Indication: DYSPEPSIA
     Dosage: 40 MG, 1X/DAY
     Route: 064
     Dates: start: 20100122
  5. VALTREX [Concomitant]
     Dosage: UNK
     Route: 064
     Dates: start: 20100219
  6. NICOTINE [Concomitant]
     Dosage: 7 MG, UNK
     Route: 064
     Dates: start: 20090817
  7. EFFEXOR XR [Suspect]
     Dosage: 37.5 MG, 1 CAPSULE EVERY DAY
     Route: 064
     Dates: start: 20090701, end: 20090101
  8. EFFEXOR XR [Suspect]
     Indication: DEPRESSION
     Dosage: 75 MG, 1X/DAY
     Route: 064
     Dates: start: 20080303
  9. EFFEXOR XR [Suspect]
     Dosage: 37.5 MG, 3 CAPSULES EVERY DAY
     Route: 064
     Dates: start: 20090716, end: 20090701
  10. EFFEXOR XR [Suspect]
     Dosage: 37.5 MG,  2 CAPSULES EVERY DAY
     Route: 064
     Dates: start: 20090701, end: 20090701
  11. MULTI-VITAMINS [Concomitant]
     Dosage: UNK
     Route: 064
     Dates: start: 20091124
  12. PRILOSEC [Concomitant]
     Indication: NAUSEA
  13. MONISTAT [Concomitant]
     Dosage: UNK
     Route: 064
     Dates: start: 20100122

REACTIONS (24)
  - CHOROIDAL COLOBOMA [None]
  - PATENT DUCTUS ARTERIOSUS [None]
  - FOETAL EXPOSURE DURING PREGNANCY [None]
  - CONGENITAL MITRAL VALVE INCOMPETENCE [None]
  - ATRIAL SEPTAL DEFECT [None]
  - AORTIC VALVE INCOMPETENCE [None]
  - LEFT VENTRICULAR HYPERTROPHY [None]
  - NEONATAL RESPIRATORY DISTRESS SYNDROME [None]
  - RETINAL COLOBOMA [None]
  - SYNDACTYLY [None]
  - CHARGE SYNDROME [None]
  - IRIS COLOBOMA [None]
  - LIVEDO RETICULARIS [None]
  - FINGER DEFORMITY [None]
  - EYELID PTOSIS CONGENITAL [None]
  - CONGENITAL MITRAL VALVE STENOSIS [None]
  - PYELOCALIECTASIS [None]
  - BICUSPID AORTIC VALVE [None]
  - STRABISMUS [None]
  - CONGENITAL HEART VALVE DISORDER [None]
  - CONGENITAL AORTIC VALVE STENOSIS [None]
  - VENTRICULAR SEPTAL DEFECT [None]
  - CARDIOMEGALY [None]
  - JAUNDICE NEONATAL [None]
